FAERS Safety Report 5204012-X (Version None)
Quarter: 2007Q1

REPORT INFORMATION
  Report Type: 
  Country: None (occurrence: None)
  Receive Date: 20070110
  Receipt Date: 20060424
  Transmission Date: 20070707
  Serious: No
  Sender: FDA-Public Use
  Company Number: US-BRISTOL-MYERS SQUIBB COMPANY-13038260

PATIENT
  Age: 44 Year
  Sex: Male
  Weight: 134 kg

DRUGS (7)
  1. ABILIFY [Suspect]
     Indication: SCHIZOAFFECTIVE DISORDER
     Dosage: DOSAGE: INCREASED TO 15 MG TWICE DIALY
     Route: 048
     Dates: start: 20030701
  2. METFORMIN HCL [Suspect]
     Dates: start: 20050101
  3. WELLBUTRIN [Concomitant]
     Dates: start: 20050101, end: 20050101
  4. TRAZODONE HCL [Concomitant]
     Dosage: DOSE VALUE: CURRENTLY REPORTED AS TWO 150 MG TABLETS ONCE DAILY.
  5. AVANDIA [Concomitant]
     Dates: start: 20050101
  6. PRAVACHOL [Concomitant]
     Dates: start: 20060331
  7. GLIPIZIDE [Concomitant]

REACTIONS (6)
  - AGORAPHOBIA [None]
  - BLOOD GLUCOSE INCREASED [None]
  - BRUXISM [None]
  - DYSPHEMIA [None]
  - FATIGUE [None]
  - SUSPICIOUSNESS [None]
